FAERS Safety Report 9358888 (Version 1)
Quarter: 2013Q2

REPORT INFORMATION
  Report Type: Spontaneous
  Country: US (occurrence: US)
  Receive Date: 20130620
  Receipt Date: 20130620
  Transmission Date: 20140414
  Serious: No
  Sender: FDA-Public Use
  Company Number: US-TEVA-413857USA

PATIENT
  Age: 12 Year
  Sex: Female
  Weight: 45.4 kg

DRUGS (2)
  1. PROAIR HFA [Suspect]
     Indication: PROPHYLAXIS AGAINST BRONCHOSPASM
     Route: 055
  2. FLOVENT [Concomitant]
     Indication: ASTHMA

REACTIONS (1)
  - Dyspnoea [Recovered/Resolved]
